FAERS Safety Report 6690056-8 (Version None)
Quarter: 2010Q2

REPORT INFORMATION
  Report Type: 
  Country: None (occurrence: None)
  Receive Date: 20100421
  Receipt Date: 20100413
  Transmission Date: 20101027
  Serious: Yes (Hospitalization)
  Sender: FDA-Public Use
  Company Number: PHHO2010US05847

PATIENT
  Age: 68 Year
  Sex: Male
  Weight: 91.7 kg

DRUGS (11)
  1. RAD001 [Suspect]
     Indication: CHORDOMA
     Dosage: 10MG/DAY
     Route: 048
     Dates: start: 20100202, end: 20100212
  2. NORMAL SALINE [Concomitant]
     Indication: CHORDOMA
  3. ALAVERT [Concomitant]
  4. ALEVE (CAPLET) [Concomitant]
  5. ACETYLSALICYLIC ACID [Concomitant]
  6. DECADRON [Concomitant]
  7. DIPHENHYDRAMINE HYDROCHLORIDE [Concomitant]
  8. ALUMINIUM HYDROXIDE W/ MAGNESIUM HYDROXIDE [Concomitant]
  9. LIDOCAINE [Concomitant]
  10. REGLAN [Concomitant]
  11. TERAZOSIN HYDROCHLORIDE [Concomitant]

REACTIONS (6)
  - DEVICE RELATED INFECTION [None]
  - EPISTAXIS [None]
  - SKIN DISORDER [None]
  - STOMATITIS [None]
  - SURGERY [None]
  - WOUND DEHISCENCE [None]
